FAERS Safety Report 14896446 (Version 6)
Quarter: 2020Q3

REPORT INFORMATION
  Report Type: Spontaneous
  Country: CA (occurrence: CA)
  Receive Date: 20180515
  Receipt Date: 20200821
  Transmission Date: 20201102
  Serious: Yes (Death, Other)
  Sender: FDA-Public Use
  Company Number: CA-PFIZER INC-2018196279

PATIENT
  Age: 72 Year
  Sex: Male
  Weight: 68 kg

DRUGS (26)
  1. ESBRIET [Suspect]
     Active Substance: PIRFENIDONE
     Dosage: 267 MG, TID
     Route: 048
     Dates: start: 2017
  2. ESBRIET [Suspect]
     Active Substance: PIRFENIDONE
     Dosage: 267 MG, QD
     Route: 048
     Dates: end: 2017
  3. ESBRIET [Suspect]
     Active Substance: PIRFENIDONE
     Dosage: 801 MG, TID
     Route: 048
     Dates: start: 2017, end: 2017
  4. IRBESARTAN. [Concomitant]
     Active Substance: IRBESARTAN
     Dosage: UNK
     Route: 065
  5. ESBRIET [Suspect]
     Active Substance: PIRFENIDONE
     Dosage: 8 DF
     Route: 048
  6. ESBRIET [Suspect]
     Active Substance: PIRFENIDONE
     Dosage: 4 DF
     Route: 065
  7. PANTOPRAZOLE [Suspect]
     Active Substance: PANTOPRAZOLE
     Dosage: 40 MG, QD
     Route: 065
     Dates: end: 2017
  8. SERTRALINE HCL [Suspect]
     Active Substance: SERTRALINE HYDROCHLORIDE
     Dosage: 5 MILLIGRAM
     Route: 065
  9. ESBRIET [Suspect]
     Active Substance: PIRFENIDONE
     Dosage: 801 MG, TID
     Route: 048
     Dates: start: 2017
  10. ESBRIET [Suspect]
     Active Substance: PIRFENIDONE
     Dosage: 2403 MG, QD (DAILY)
     Route: 048
  11. AVAPRO [Concomitant]
     Active Substance: IRBESARTAN
     Dosage: 75 MILLIGRAM, QD
     Route: 065
  12. BISOPROLOL [Concomitant]
     Active Substance: BISOPROLOL
     Dosage: UNK
     Route: 065
  13. COUMADIN [Concomitant]
     Active Substance: WARFARIN SODIUM
     Dosage: UNK
     Route: 065
  14. LASIX [Concomitant]
     Active Substance: FUROSEMIDE
     Dosage: UNK
     Route: 065
  15. WARFARIN [Concomitant]
     Active Substance: WARFARIN
     Dosage: UNK
     Route: 065
  16. ZANTAC [Concomitant]
     Active Substance: RANITIDINE HYDROCHLORIDE
     Dosage: UNK
     Route: 065
  17. ESBRIET [Suspect]
     Active Substance: PIRFENIDONE
     Indication: IDIOPATHIC PULMONARY FIBROSIS
     Dosage: 267 MILLIGRAM, QD
     Route: 048
  18. ESBRIET [Suspect]
     Active Substance: PIRFENIDONE
     Dosage: 5 DF
     Route: 048
  19. ESBRIET [Suspect]
     Active Substance: PIRFENIDONE
     Dosage: 534 MILLIGRAM, TID
     Route: 048
  20. RABEPRAZOLE [Suspect]
     Active Substance: RABEPRAZOLE
     Dosage: 20 MILLIGRAM, QD (DAILY)
     Route: 065
  21. ACETYLSALICYLIC ACID [Concomitant]
     Active Substance: ASPIRIN
     Dosage: UNK
     Route: 065
  22. TECTA [Concomitant]
     Active Substance: PANTOPRAZOLE MAGNESIUM
     Dosage: 40 MILLIGRAM
     Route: 065
  23. ESBRIET [Suspect]
     Active Substance: PIRFENIDONE
     Dosage: 1602 MG, QD
     Route: 048
     Dates: start: 2017
  24. DABIGATRAN ETEXILATE MESILATE [Suspect]
     Active Substance: DABIGATRAN ETEXILATE MESYLATE
     Dosage: UNK
     Route: 065
  25. ESBRIET [Suspect]
     Active Substance: PIRFENIDONE
     Indication: IDIOPATHIC PULMONARY FIBROSIS
     Dosage: UNK, QD
     Route: 048
  26. LIPITOR [Concomitant]
     Active Substance: ATORVASTATIN CALCIUM
     Dosage: UNK
     Route: 065

REACTIONS (34)
  - Gastrooesophageal reflux disease [Unknown]
  - Muscle strain [Unknown]
  - Pruritus [Unknown]
  - Rhinorrhoea [Unknown]
  - Dysgeusia [Unknown]
  - Decreased appetite [Unknown]
  - Diarrhoea [Unknown]
  - Gastrointestinal motility disorder [Unknown]
  - Pneumonia [Unknown]
  - Abdominal pain [Unknown]
  - Deafness [Unknown]
  - Flatulence [Unknown]
  - Rectal haemorrhage [Unknown]
  - Sneezing [Unknown]
  - Headache [Recovered/Resolved]
  - Nausea [Recovering/Resolving]
  - Haemochromatosis [Not Recovered/Not Resolved]
  - Abdominal pain upper [Unknown]
  - Anorectal discomfort [Unknown]
  - Blood pressure increased [Unknown]
  - Death [Fatal]
  - Dyspnoea exertional [Not Recovered/Not Resolved]
  - Fatigue [Not Recovered/Not Resolved]
  - Constipation [Unknown]
  - Heart rate increased [Unknown]
  - Rash [Unknown]
  - Dizziness [Recovered/Resolved]
  - Weight decreased [Unknown]
  - Asthenia [Unknown]
  - Ear discomfort [Unknown]
  - Abdominal discomfort [Not Recovered/Not Resolved]
  - Taste disorder [Not Recovered/Not Resolved]
  - Oesophageal pain [Unknown]
  - Anxiety [Unknown]

NARRATIVE: CASE EVENT DATE: 2017
